FAERS Safety Report 5787473-7 (Version None)
Quarter: 2008Q2

REPORT INFORMATION
  Report Type: 
  Country: None (occurrence: None)
  Receive Date: 20080620
  Receipt Date: 20080611
  Transmission Date: 20081010
  Serious: Yes (Other)
  Sender: FDA-Public Use
  Company Number: 2008AP000294

PATIENT
  Age: 6 Month
  Sex: Female

DRUGS (2)
  1. CETIRIZINE HCL [Suspect]
     Indication: HYPERSENSITIVITY
     Dosage: 10 MG; QD; TRMA
     Dates: start: 20080123, end: 20080123
  2. CETIRIZINE HCL [Suspect]
     Indication: HYPERSENSITIVITY
     Dosage: 10 MG; QD; TRMA
     Dates: start: 20080126

REACTIONS (4)
  - DIARRHOEA HAEMORRHAGIC [None]
  - DRUG EXPOSURE VIA BREAST MILK [None]
  - MATERNAL DRUGS AFFECTING FOETUS [None]
  - VIRAL INFECTION [None]
